FAERS Safety Report 22181558 (Version 1)
Quarter: 2023Q2

REPORT INFORMATION
  Report Type: Spontaneous
  Country: FR (occurrence: FR)
  Receive Date: 20230406
  Receipt Date: 20230406
  Transmission Date: 20230721
  Serious: Yes (Other)
  Sender: FDA-Public Use
  Company Number: None

PATIENT
  Age: 30 Year
  Sex: Male

DRUGS (2)
  1. LAMALINE (ACETAMINOPHEN\CAFFEINE\OPIUM) [Suspect]
     Active Substance: ACETAMINOPHEN\CAFFEINE\OPIUM
     Indication: Toothache
     Dosage: 10 DOSAGE FORM,3 G OF PARACETAMOL, 1G OF OPIUM
     Route: 048
     Dates: start: 20230313
  2. ACETAMINOPHEN [Suspect]
     Active Substance: ACETAMINOPHEN
     Indication: Toothache
     Dosage: 10 GRAM (10G OVER 24 HOURS)
     Route: 048
     Dates: start: 20230313

REACTIONS (3)
  - Nausea [Recovered/Resolved]
  - Incorrect dose administered [Recovered/Resolved]
  - Abdominal pain [Recovered/Resolved]

NARRATIVE: CASE EVENT DATE: 20230313
